FAERS Safety Report 14169829 (Version 1)
Quarter: 2017Q4

REPORT INFORMATION
  Report Type: Spontaneous
  Country: US (occurrence: US)
  Receive Date: 20171108
  Receipt Date: 20171108
  Transmission Date: 20180321
  Serious: No
  Sender: FDA-Public Use
  Company Number: US-GLAXOSMITHKLINE-US2017166999

PATIENT
  Age: 76 Year
  Sex: Female

DRUGS (1)
  1. VOLTAREN [Suspect]
     Active Substance: DICLOFENAC SODIUM
     Indication: PRODUCT USED FOR UNKNOWN INDICATION
     Dosage: UNK
     Dates: start: 20171029, end: 20171029

REACTIONS (4)
  - Hypersensitivity [Unknown]
  - Peripheral swelling [Unknown]
  - Skin discolouration [Unknown]
  - Expired product administered [Unknown]

NARRATIVE: CASE EVENT DATE: 20171029
